FAERS Safety Report 15259627 (Version 1)
Quarter: 2018Q3

REPORT INFORMATION
  Report Type: Spontaneous
  Country: US (occurrence: US)
  Receive Date: 20180809
  Receipt Date: 20180809
  Transmission Date: 20181010
  Serious: No
  Sender: FDA-Public Use
  Company Number: US-BAUSCH-BL-2018-017055

PATIENT
  Age: 70 Year
  Sex: Female
  Weight: 51.3 kg

DRUGS (1)
  1. ZIRGAN [Suspect]
     Active Substance: GANCICLOVIR
     Indication: HERPES VIRUS INFECTION
     Dosage: FOR THE FIRST AND ONLY TIME IN THE LEFT EYE ON THE EVENING
     Route: 047
     Dates: start: 20180614, end: 20180614

REACTIONS (2)
  - Eye swelling [Recovering/Resolving]
  - Eye pruritus [Unknown]

NARRATIVE: CASE EVENT DATE: 20180614
